FAERS Safety Report 4304572-7 (Version None)
Quarter: 2004Q1

REPORT INFORMATION
  Report Type: 
  Country: None (occurrence: None)
  Receive Date: 20040224
  Receipt Date: 20040213
  Transmission Date: 20041129
  Serious: Yes (Other)
  Sender: FDA-Public Use
  Company Number: DE-JNJFOC-20040203609

PATIENT
  Age: 50 Year
  Sex: Female

DRUGS (1)
  1. PROPULSIN (CISAPRIDE) UNSPECIFIED [Suspect]
     Indication: GALLBLADDER OPERATION
     Dosage: TREATED FOR 7 TO 10 YEARS
     Dates: end: 20000101

REACTIONS (5)
  - CARDIAC ANEURYSM [None]
  - CARDIAC DISORDER [None]
  - ECHOCARDIOGRAM ABNORMAL [None]
  - EMBOLISM [None]
  - MITRAL VALVE PROLAPSE [None]
